FAERS Safety Report 26216164 (Version 1)
Quarter: 2025Q4

REPORT INFORMATION
  Report Type: Spontaneous
  Country: EG (occurrence: EG)
  Receive Date: 20251231
  Receipt Date: 20251231
  Transmission Date: 20260118
  Serious: Yes (Other)
  Sender: HIKMA
  Company Number: EG-HIKMA PHARMACEUTICALS-EG-H14001-25-13890

PATIENT
  Age: 67 Year
  Sex: Male
  Weight: 53 kg

DRUGS (2)
  1. PACLITAXEL [Suspect]
     Active Substance: PACLITAXEL
     Indication: Laryngeal cancer
     Dosage: 128 MILLIGRAM A CONTINUOUS INTRAVENOUS INFUSION OVER 1 HOUR
  2. CARBOPLATIN [Suspect]
     Active Substance: CARBOPLATIN
     Indication: Laryngeal cancer
     Dosage: 153 MILLIGRAM INTRAVENOUS INFUSION OVER 2 HOURS

REACTIONS (3)
  - Oral fungal infection [Recovered/Resolved]
  - Anaemia [Recovered/Resolved]
  - Neutropenia [Recovered/Resolved]

NARRATIVE: CASE EVENT DATE: 20250919
